FAERS Safety Report 7960676-9 (Version None)
Quarter: 2011Q4

REPORT INFORMATION
  Report Type: 
  Country: None (occurrence: None)
  Receive Date: 20111206
  Receipt Date: 20111128
  Transmission Date: 20120403
  Serious: Yes (Hospitalization, Other)
  Sender: FDA-Public Use
  Company Number: US-CELGENEUS-163-21880-11011801

PATIENT
  Sex: Male

DRUGS (8)
  1. REVLIMID [Suspect]
     Dosage: 5 MILLIGRAM
     Route: 048
     Dates: start: 20101201
  2. LISINOPRIL AND HYDROCHLOROTHIAZIDE [Concomitant]
     Indication: BLOOD PRESSURE
     Dosage: 20/12.5MG
     Route: 048
  3. LORAZEPAM [Concomitant]
     Indication: ANXIETY
     Dosage: .5 MILLIGRAM
     Route: 048
  4. FLUCONAZOLE [Concomitant]
     Indication: INFECTION
     Route: 048
  5. MORPHINE SULFATE [Concomitant]
     Indication: PAIN
     Dosage: 15 MILLIGRAM
     Route: 048
  6. ZOLPIDEM [Concomitant]
     Indication: INSOMNIA
     Dosage: 10 MILLIGRAM
     Route: 048
  7. MS CONTIN [Concomitant]
     Indication: PAIN
     Dosage: 15 MILLIGRAM
     Route: 048
  8. SENOKOT [Concomitant]
     Indication: CONSTIPATION
     Route: 048

REACTIONS (1)
  - SPINAL DISORDER [None]
